FAERS Safety Report 15189681 (Version 1)
Quarter: 2018Q3

REPORT INFORMATION
  Report Type: Spontaneous
  Country: US (occurrence: US)
  Receive Date: 20180724
  Receipt Date: 20180724
  Transmission Date: 20181010
  Serious: No
  Sender: FDA-Public Use
  Company Number: US-VERTEX PHARMACEUTICALS-2018-004985

PATIENT
  Age: 35 Year
  Sex: Female

DRUGS (3)
  1. AZTREONAM LYSINE [Suspect]
     Active Substance: AZTREONAM LYSINE
     Indication: BRONCHIECTASIS
     Dosage: 75 MG, TID
     Route: 055
     Dates: start: 20171217
  2. PULMOZYME [Suspect]
     Active Substance: DORNASE ALFA
     Indication: BRONCHIECTASIS
     Dosage: 1 MG, QD
     Route: 055
     Dates: start: 20180116
  3. ORKAMBI [Suspect]
     Active Substance: IVACAFTOR\LUMACAFTOR
     Indication: CYSTIC FIBROSIS
     Dosage: 1 DOSAGE FORM, BID
     Route: 048
     Dates: start: 20150810

REACTIONS (1)
  - Nasopharyngitis [Not Recovered/Not Resolved]

NARRATIVE: CASE EVENT DATE: 201806
